FAERS Safety Report 4650926-9 (Version None)
Quarter: 2005Q2

REPORT INFORMATION
  Report Type: 
  Country: None (occurrence: None)
  Receive Date: 20050503
  Receipt Date: 20050418
  Transmission Date: 20051028
  Serious: Yes (Other)
  Sender: FDA-Public Use
  Company Number: US-GLAXOSMITHKLINE-A0554664A

PATIENT
  Age: 76 Year
  Sex: Female

DRUGS (1)
  1. NICORETTE [Suspect]
     Dosage: 2MG SIX TIMES PER DAY
     Route: 002
     Dates: start: 20050125

REACTIONS (4)
  - DYSARTHRIA [None]
  - SALIVARY HYPERSECRETION [None]
  - TONGUE DISORDER [None]
  - TONGUE PARALYSIS [None]
